FAERS Safety Report 4876530-5 (Version None)
Quarter: 2006Q1

REPORT INFORMATION
  Report Type: 
  Country: None (occurrence: None)
  Receive Date: 20060110
  Receipt Date: 20060103
  Transmission Date: 20060701
  Serious: Yes (Life-Threatening)
  Sender: FDA-Public Use
  Company Number: GB-GLAXOSMITHKLINE-B0405311A

PATIENT
  Age: 67 Year
  Sex: Male

DRUGS (2)
  1. NARAMIG [Suspect]
     Indication: MIGRAINE
     Dosage: 2.5MG AS REQUIRED
     Route: 048
  2. ASPIRIN [Concomitant]
     Indication: CARDIOVASCULAR EVENT PROPHYLAXIS
     Dosage: 75MG PER DAY
     Route: 048

REACTIONS (2)
  - CEREBROVASCULAR ACCIDENT [None]
  - TRANSIENT ISCHAEMIC ATTACK [None]
